FAERS Safety Report 9641046 (Version 1)
Quarter: 2013Q4

REPORT INFORMATION
  Report Type: Spontaneous
  Country: US (occurrence: US)
  Receive Date: 20131023
  Receipt Date: 20131023
  Transmission Date: 20140711
  Serious: Yes (Other)
  Sender: FDA-Public Use
  Company Number: US-RB-059182-13

PATIENT
  Age: 19 Year
  Sex: Female

DRUGS (2)
  1. MUCINEX D [Suspect]
     Dosage: 1 TABLET EVERY 12 HOURS
     Route: 048
     Dates: start: 20130929
  2. MUCINEX D [Suspect]
     Indication: PRODUCT USED FOR UNKNOWN INDICATION
     Dosage: 2 TABLETS EVERY 12 HOURS
     Route: 048

REACTIONS (2)
  - Haemorrhage [Not Recovered/Not Resolved]
  - Incorrect drug administration duration [Not Recovered/Not Resolved]
